FAERS Safety Report 4699086-9 (Version None)
Quarter: 2005Q2

REPORT INFORMATION
  Report Type: 
  Country: None (occurrence: None)
  Receive Date: 20050624
  Receipt Date: 20050426
  Transmission Date: 20051028
  Serious: Yes (Hospitalization)
  Sender: FDA-Public Use
  Company Number: JP-ROCHE-403188

PATIENT
  Age: 66 Year
  Sex: Male

DRUGS (4)
  1. TAMIFLU [Suspect]
     Route: 048
     Dates: start: 20050325, end: 20050330
  2. FLOMOX [Suspect]
     Route: 048
     Dates: start: 20050325, end: 20050330
  3. LOXONIN [Suspect]
     Route: 048
     Dates: start: 20050325, end: 20050330
  4. MINOMYCIN [Suspect]
     Indication: INFECTION PROPHYLAXIS
     Route: 048
     Dates: start: 20050310, end: 20050328

REACTIONS (11)
  - CHEST X-RAY ABNORMAL [None]
  - DYSPNOEA [None]
  - GENERALISED OEDEMA [None]
  - INFLAMMATION [None]
  - LUNG DISORDER [None]
  - PANCREATIC ENZYMES INCREASED [None]
  - PANCREATITIS ACUTE [None]
  - PLEURAL EFFUSION [None]
  - PO2 DECREASED [None]
  - PULMONARY OEDEMA [None]
  - PYREXIA [None]
